FAERS Safety Report 14989698 (Version 1)
Quarter: 2018Q2

REPORT INFORMATION
  Report Type: Spontaneous
  Country: US (occurrence: US)
  Receive Date: 20180608
  Receipt Date: 20180608
  Transmission Date: 20180711
  Serious: No
  Sender: FDA-Public Use
  Company Number: US-ROCHE-1921294

PATIENT
  Sex: Female

DRUGS (17)
  1. OMEPRAZOLE. [Concomitant]
     Active Substance: OMEPRAZOLE
  2. PAROXETINE HCL [Concomitant]
     Active Substance: PAROXETINE HYDROCHLORIDE
  3. HYDROMORPHON RATIOPHARM [Concomitant]
     Route: 065
  4. FENTANYL CITRATE. [Concomitant]
     Active Substance: FENTANYL CITRATE
     Route: 065
  5. LEVOFLOXACIN. [Concomitant]
     Active Substance: LEVOFLOXACIN
     Route: 065
  6. RANITIDINE. [Concomitant]
     Active Substance: RANITIDINE
     Route: 065
  7. SIMVASTATIN. [Concomitant]
     Active Substance: SIMVASTATIN
     Route: 065
  8. AZITHROMYCIN ANHYDROUS. [Concomitant]
     Active Substance: AZITHROMYCIN ANHYDROUS
     Route: 065
  9. MUPIROCIN. [Concomitant]
     Active Substance: MUPIROCIN
     Route: 065
  10. ACTEMRA [Suspect]
     Active Substance: TOCILIZUMAB
     Indication: RHEUMATOID ARTHRITIS
     Route: 058
  11. VALGANCICLOVIR. [Suspect]
     Active Substance: VALGANCICLOVIR
     Indication: RHEUMATOID ARTHRITIS
     Route: 065
  12. CARVEDILOL. [Concomitant]
     Active Substance: CARVEDILOL
     Route: 065
  13. LEVAQUIN [Concomitant]
     Active Substance: LEVOFLOXACIN
     Route: 065
  14. FLUTICASONE. [Concomitant]
     Active Substance: FLUTICASONE
     Route: 065
  15. METHOCARBAMOL. [Concomitant]
     Active Substance: METHOCARBAMOL
     Route: 065
  16. TRAMADOL HCL [Concomitant]
     Active Substance: TRAMADOL HYDROCHLORIDE
     Route: 065
  17. OTREXUP [Concomitant]
     Active Substance: METHOTREXATE
     Route: 065

REACTIONS (1)
  - Malaise [Unknown]
